FAERS Safety Report 6495212-X (Version None)
Quarter: 2009Q4

REPORT INFORMATION
  Report Type: 
  Country: None (occurrence: None)
  Receive Date: 20091214
  Receipt Date: 20090514
  Transmission Date: 20100525
  Serious: No
  Sender: FDA-Public Use
  Company Number: US-BRISTOL-MYERS SQUIBB COMPANY-14624050

PATIENT
  Sex: Male
  Weight: 71 kg

DRUGS (3)
  1. ABILIFY [Suspect]
     Indication: SCHIZOAFFECTIVE DISORDER
     Dosage: DOSE REDUCED TO 2MG.
     Route: 048
     Dates: start: 20080801
  2. LEXAPRO [Concomitant]
  3. TRAZODONE HCL [Concomitant]
     Dosage: AT BED TIME TAKEN.
     Dates: start: 20080701

REACTIONS (1)
  - TARDIVE DYSKINESIA [None]
